FAERS Safety Report 19824342 (Version 1)
Quarter: 2021Q3

REPORT INFORMATION
  Report Type: Spontaneous
  Country: US (occurrence: US)
  Receive Date: 20210913
  Receipt Date: 20210913
  Transmission Date: 20211014
  Serious: No
  Sender: FDA-Public Use
  Company Number: US-PERRIGO-20US011791

PATIENT
  Age: 72 Year
  Sex: Male
  Weight: 77.1 kg

DRUGS (1)
  1. TESTOSTERONE. [Suspect]
     Active Substance: TESTOSTERONE
     Indication: HORMONE LEVEL ABNORMAL
     Dosage: 60.75 MG, QD
     Route: 061
     Dates: start: 202006

REACTIONS (1)
  - Application site dryness [Not Recovered/Not Resolved]

NARRATIVE: CASE EVENT DATE: 20200803
